FAERS Safety Report 25229330 (Version 1)
Quarter: 2025Q2

REPORT INFORMATION
  Report Type: Spontaneous
  Country: US (occurrence: US)
  Receive Date: 20250423
  Receipt Date: 20250423
  Transmission Date: 20250717
  Serious: No
  Sender: MYLAN
  Company Number: US-MYLANLABS-2025M1031980

PATIENT
  Sex: Female

DRUGS (1)
  1. ESTRADIOL TRANSDERMAL SYSTEM [Suspect]
     Active Substance: ESTRADIOL
     Indication: Urinary incontinence
     Dosage: 0.1 MILLIGRAM, QD (ONCE WEEKLY)

REACTIONS (1)
  - Drug effective for unapproved indication [Recovering/Resolving]

NARRATIVE: CASE EVENT DATE: 20250404
